FAERS Safety Report 13862389 (Version 4)
Quarter: 2018Q3

REPORT INFORMATION
  Report Type: Spontaneous
  Country: ZA (occurrence: ZA)
  Receive Date: 20170813
  Receipt Date: 20180804
  Transmission Date: 20181010
  Serious: Yes (Hospitalization, Other)
  Sender: FDA-Public Use
  Company Number: ZA-AMGEN-ZAFSP2017122515

PATIENT
  Age: 39 Year
  Sex: Female
  Weight: 75 kg

DRUGS (7)
  1. PREDNISONE. [Concomitant]
     Active Substance: PREDNISONE
     Dosage: 2.5 MG, DAILY
  2. MINERVA [Concomitant]
     Active Substance: CYPROTERONE ACETATE\ETHINYL ESTRADIOL
  3. PREDNISONE. [Concomitant]
     Active Substance: PREDNISONE
     Indication: ASTHMA
     Dosage: 10 MG, DAILY
     Route: 048
     Dates: start: 2015
  4. ENBREL [Suspect]
     Active Substance: ETANERCEPT
     Indication: RHEUMATOID ARTHRITIS
     Dosage: 50 MG, WEEKLY
     Route: 058
     Dates: start: 20170317
  5. METHOTREXATE. [Concomitant]
     Active Substance: METHOTREXATE
  6. ARCOXIA [Concomitant]
     Active Substance: ETORICOXIB
     Dosage: 90 MG, DAILY
     Route: 048
  7. PREDNISONE. [Concomitant]
     Active Substance: PREDNISONE
     Dosage: 2.5 MG, DAILY

REACTIONS (11)
  - Pleuritic pain [Unknown]
  - Staphylococcus test positive [Unknown]
  - Skin papilloma [Unknown]
  - Pulmonary embolism [Recovered/Resolved]
  - Haemoptysis [Unknown]
  - White blood cell count increased [Unknown]
  - Paronychia [Unknown]
  - Blood creatinine increased [Unknown]
  - C-reactive protein increased [Unknown]
  - Neutrophil count increased [Unknown]
  - Russell^s viper venom time abnormal [Unknown]

NARRATIVE: CASE EVENT DATE: 20170804
